FAERS Safety Report 6524464-2 (Version None)
Quarter: 2009Q4

REPORT INFORMATION
  Report Type: 
  Country: None (occurrence: None)
  Receive Date: 20091231
  Receipt Date: 20091231
  Transmission Date: 20100525
  Serious: No
  Sender: FDA-Public Use
  Company Number: None

PATIENT
  Age: 57 Year
  Sex: Female
  Weight: 61.2356 kg

DRUGS (2)
  1. VERSED [Suspect]
     Indication: INDUCTION OF ANAESTHESIA
     Dosage: 2 MG PRE-OP IV BOLUS; 2 MG ANESTHESIA INDUCTI IV BOLUS
     Route: 040
     Dates: start: 20091106, end: 20091106
  2. VERSED [Suspect]
     Indication: SEDATIVE THERAPY
     Dosage: 2 MG PRE-OP IV BOLUS; 2 MG ANESTHESIA INDUCTI IV BOLUS
     Route: 040
     Dates: start: 20091106, end: 20091106

REACTIONS (14)
  - AGITATION [None]
  - AMNESIA [None]
  - ANGER [None]
  - ANXIETY [None]
  - CONFUSIONAL STATE [None]
  - FEAR [None]
  - FEELING ABNORMAL [None]
  - HYPERVENTILATION [None]
  - HYPOPHAGIA [None]
  - INSOMNIA [None]
  - NIGHTMARE [None]
  - PANIC REACTION [None]
  - TREMOR [None]
  - VERTIGO [None]
